FAERS Safety Report 4286274-9 (Version None)
Quarter: 2004Q1

REPORT INFORMATION
  Report Type: 
  Country: None (occurrence: None)
  Receive Date: 20040205
  Receipt Date: 20040205
  Transmission Date: 20041129
  Serious: Yes (Other)
  Sender: FDA-Public Use
  Company Number: None

PATIENT
  Age: 50 Year
  Sex: Female
  Weight: 121 kg

DRUGS (9)
  1. XENICAL [Suspect]
     Indication: OBESITY
     Dosage: 120 MG PO QHS PTA AND CONTINUED THROUGH HOSPIALIZATION]
     Route: 048
  2. WELLBUTRIN [Concomitant]
  3. PROZAC [Concomitant]
  4. ALTACE [Concomitant]
  5. GLUCOPHAGE [Concomitant]
  6. GLUCOTROL [Concomitant]
  7. LIPITOR [Concomitant]
  8. AVANDIA [Concomitant]
  9. XALATAN EYE GTTS [Concomitant]

REACTIONS (4)
  - FALL [None]
  - INTERNATIONAL NORMALISED RATIO INCREASED [None]
  - JOINT INJURY [None]
  - PATELLA FRACTURE [None]
